FAERS Safety Report 4664729-2 (Version None)
Quarter: 2005Q2

REPORT INFORMATION
  Report Type: 
  Country: None (occurrence: None)
  Receive Date: 20050516
  Receipt Date: 20050503
  Transmission Date: 20051028
  Serious: Yes (Life-Threatening, Hospitalization, Other)
  Sender: FDA-Public Use
  Company Number: HQWYE555105MAY05

PATIENT
  Age: 3 Year
  Sex: Female

DRUGS (5)
  1. CHILDREN'S ADVIL [Suspect]
     Indication: INFLUENZA
     Dosage: ORAL
     Route: 048
     Dates: start: 20050127
  2. PREDNISOLONE [Suspect]
     Indication: EAR INFECTION
     Dates: start: 20050202, end: 20050101
  3. PREDNISOLONE [Suspect]
     Indication: TRACHEITIS
     Dates: start: 20050202, end: 20050101
  4. DOLIPRANE (PARACETAMOL) [Concomitant]
  5. ORELOX (CEFPODOXIME PROXETIL) [Concomitant]

REACTIONS (17)
  - ACTIVATED PARTIAL THROMBOPLASTIN TIME PROLONGED [None]
  - AGITATION [None]
  - ATELECTASIS [None]
  - BLOOD SODIUM DECREASED [None]
  - BLOOD UREA DECREASED [None]
  - DRUG EFFECT DECREASED [None]
  - EAR INFECTION [None]
  - HAEMOGLOBIN DECREASED [None]
  - HERPES SEPSIS [None]
  - HERPES SIMPLEX [None]
  - LABORATORY TEST ABNORMAL [None]
  - NECROSIS [None]
  - PLATELET COUNT INCREASED [None]
  - PLEURISY [None]
  - PNEUMONIA STREPTOCOCCAL [None]
  - TRACHEITIS [None]
  - WEIGHT DECREASED [None]
